FAERS Safety Report 9111642 (Version 1)
Quarter: 2013Q1

REPORT INFORMATION
  Report Type: Spontaneous
  Country: US (occurrence: US)
  Receive Date: 20130219
  Receipt Date: 20130219
  Transmission Date: 20140127
  Serious: No
  Sender: FDA-Public Use
  Company Number: US-BRISTOL-MYERS SQUIBB COMPANY-17109695

PATIENT
  Age: 63 Year
  Sex: Male
  Weight: 117.91 kg

DRUGS (10)
  1. ABATACEPT SUBQ INJECTION 125MG/ML [Suspect]
     Route: 058
  2. TIKOSYN [Concomitant]
     Dosage: CAPS
  3. NEXIUM [Concomitant]
     Dosage: CAPS
  4. AMLODIPINE [Concomitant]
     Dosage: TABS
  5. METOPROLOL [Concomitant]
     Dosage: TABS
  6. CELEBREX [Concomitant]
     Dosage: CAPS
  7. LIPITOR [Concomitant]
     Dosage: TABS
  8. CITALOPRAM [Concomitant]
     Dosage: TABS
  9. ASPIRIN [Concomitant]
     Dosage: TABS
  10. AZATHIOPRINE [Concomitant]
     Dosage: TABS

REACTIONS (1)
  - Arthralgia [Unknown]
